FAERS Safety Report 9594629 (Version 1)
Quarter: 2013Q4

REPORT INFORMATION
  Report Type: Spontaneous
  Country: US (occurrence: None)
  Receive Date: 20131002
  Receipt Date: 20131002
  Transmission Date: 20140711
  Serious: Yes (Other)
  Sender: FDA-Public Use
  Company Number: 2013-1549

PATIENT
  Age: 56 Year
  Sex: Male
  Weight: 88.4 kg

DRUGS (1)
  1. CARFILZOMIB [Suspect]
     Indication: PLASMA CELL MYELOMA
     Dosage: (DAYS 1, 2), INTRAVENOUS
     Route: 042
     Dates: start: 2013

REACTIONS (1)
  - Hyperuricaemia [None]
